FAERS Safety Report 7309888-8 (Version None)
Quarter: 2011Q1

REPORT INFORMATION
  Report Type: 
  Country: None (occurrence: None)
  Receive Date: 20110119
  Receipt Date: 20100913
  Transmission Date: 20110831
  Serious: Yes (Other)
  Sender: FDA-Public Use
  Company Number: A-US2010-39704

PATIENT
  Age: 34 Year
  Sex: Female

DRUGS (2)
  1. TRACLEER [Suspect]
     Indication: PULMONARY ARTERIAL HYPERTENSION
     Dosage: ORAL
     Route: 048
     Dates: start: 20100701
  2. REVATIO [Concomitant]

REACTIONS (6)
  - NAUSEA [None]
  - RASH [None]
  - AMENORRHOEA [None]
  - VOMITING [None]
  - DIARRHOEA [None]
  - ASTHENIA [None]
